FAERS Safety Report 10044545 (Version 1)
Quarter: 2014Q1

REPORT INFORMATION
  Report Type: Spontaneous
  Country: FR (occurrence: FR)
  Receive Date: 20140328
  Receipt Date: 20140328
  Transmission Date: 20141002
  Serious: Yes (Hospitalization)
  Sender: FDA-Public Use
  Company Number: FR-PFIZER INC-2014087529

PATIENT
  Age: 76 Year
  Sex: Male

DRUGS (11)
  1. CORDARONE [Suspect]
     Indication: ATRIAL FIBRILLATION
     Dosage: UNK
     Route: 048
     Dates: start: 2001, end: 2013
  2. CORDARONE [Suspect]
     Dosage: UNK
     Route: 048
     Dates: start: 2013, end: 20140210
  3. PREVISCAN [Concomitant]
     Dosage: UNK
  4. AUGMENTIN [Concomitant]
     Indication: PNEUMONIA
     Dosage: UNK
     Dates: start: 201401
  5. TRIATEC [Concomitant]
     Dosage: UNK
  6. XATRAL [Concomitant]
     Dosage: UNK
  7. ELISOR [Concomitant]
     Dosage: UNK
  8. AVLOCARDYL [Concomitant]
     Dosage: UNK
  9. EZETROL [Concomitant]
     Dosage: UNK
  10. CHIBRO-PROSCAR [Concomitant]
     Dosage: UNK
  11. PRAVACHOL [Concomitant]
     Dosage: UNK

REACTIONS (2)
  - Interstitial lung disease [Not Recovered/Not Resolved]
  - Thrombophlebitis superficial [Unknown]
